FAERS Safety Report 6785731-0 (Version None)
Quarter: 2010Q2

REPORT INFORMATION
  Report Type: 
  Country: None (occurrence: None)
  Receive Date: 20100623
  Receipt Date: 20100618
  Transmission Date: 20101027
  Serious: Yes (Life-Threatening, Other)
  Sender: FDA-Public Use
  Company Number: PHHY2008US00634

PATIENT
  Sex: Female

DRUGS (4)
  1. LOPRESSOR [Suspect]
     Indication: BLOOD PRESSURE
  2. NORVASC [Concomitant]
     Indication: BLOOD PRESSURE
  3. RYTHMOL [Concomitant]
     Indication: BLOOD PRESSURE
  4. FOSINOPRIL SODIUM [Concomitant]
     Indication: BLOOD PRESSURE

REACTIONS (5)
  - BONE NEOPLASM MALIGNANT [None]
  - CARDIAC DISORDER [None]
  - GAIT DISTURBANCE [None]
  - PAIN [None]
  - STRESS [None]
